FAERS Safety Report 20891738 (Version 3)
Quarter: 2022Q3

REPORT INFORMATION
  Report Type: Spontaneous
  Country: HU (occurrence: HU)
  Receive Date: 20220530
  Receipt Date: 20220705
  Transmission Date: 20221027
  Serious: Yes (Death, Other)
  Sender: FDA-Public Use
  Company Number: HU-LUNDBECK-DKLU3048407

PATIENT
  Age: 70 Year
  Sex: Male

DRUGS (12)
  1. BRINTELLIX [Suspect]
     Active Substance: VORTIOXETINE HYDROBROMIDE
     Indication: Depression
     Dosage: 5 MILLIGRAM, QD
     Route: 048
  2. LAMOLEP [Concomitant]
     Indication: Bipolar disorder
     Dosage: UNK
     Route: 065
  3. LAMOLEP [Concomitant]
     Dosage: UNK
     Route: 065
  4. LAMOLEP [Concomitant]
     Dosage: UNK
     Route: 065
  5. TWYNSTA [Concomitant]
     Active Substance: AMLODIPINE BESYLATE\TELMISARTAN
     Indication: Product used for unknown indication
     Dosage: UNK
     Route: 065
  6. NEBIPRES [Concomitant]
     Indication: Product used for unknown indication
     Dosage: UNK
     Route: 065
  7. ROSUVASTATIN CALCIUM [Concomitant]
     Active Substance: ROSUVASTATIN CALCIUM
     Indication: Product used for unknown indication
     Dosage: UNK
     Route: 065
  8. BETAMETHASONE [Concomitant]
     Active Substance: BETAMETHASONE
     Indication: Product used for unknown indication
     Dosage: UNK
     Route: 065
  9. RILMENIDINE [Concomitant]
     Active Substance: RILMENIDINE
     Indication: Product used for unknown indication
     Dosage: UNK
     Route: 065
  10. PIRACETAM [Concomitant]
     Active Substance: PIRACETAM
     Indication: Product used for unknown indication
     Dosage: UNK
     Route: 065
  11. EDOXABAN TOSYLATE [Concomitant]
     Active Substance: EDOXABAN TOSYLATE
     Indication: Product used for unknown indication
     Dosage: UNK
     Route: 065
  12. CLOPIDOGREL [Concomitant]
     Active Substance: CLOPIDOGREL BISULFATE
     Indication: Product used for unknown indication
     Dosage: 75 MILLIGRAM
     Route: 065

REACTIONS (3)
  - Hanging [Fatal]
  - Completed suicide [Fatal]
  - Mood altered [Unknown]

NARRATIVE: CASE EVENT DATE: 20220101
